FAERS Safety Report 17348459 (Version 1)
Quarter: 2020Q1

REPORT INFORMATION
  Report Type: Spontaneous
  Country: US (occurrence: US)
  Receive Date: 20200115
  Receipt Date: 20200115
  Transmission Date: 20200409
  Serious: Yes (Hospitalization)
  Sender: FDA-Public Use
  Company Number: None

PATIENT
  Sex: Female

DRUGS (7)
  1. TACROLIMUS. [Concomitant]
     Active Substance: TACROLIMUS
  2. TALTZ [Suspect]
     Active Substance: IXEKIZUMAB
     Indication: PSORIASIS
     Dosage: ?          OTHER FREQUENCY:Q4WKS ;?
     Route: 058
     Dates: start: 20190806
  3. XIFAXAN [Concomitant]
     Active Substance: RIFAXIMIN
  4. MELOXICAM. [Concomitant]
     Active Substance: MELOXICAM
  5. TRIAMCINOLON CRE [Concomitant]
  6. VIT D [Concomitant]
     Active Substance: VITAMIN D NOS
  7. HYDROXZY HCL [Concomitant]

REACTIONS (1)
  - Cellulitis [None]
